FAERS Safety Report 10599210 (Version 1)
Quarter: 2014Q4

REPORT INFORMATION
  Report Type: Report from Study
  Country: BR (occurrence: BR)
  Receive Date: 20141121
  Receipt Date: 20141121
  Transmission Date: 20150529
  Serious: Yes (Hospitalization, Other)
  Sender: FDA-Public Use
  Company Number: PHHY2014BR152723

PATIENT
  Sex: Female
  Weight: 46.2 kg

DRUGS (2)
  1. EXELON PATCH [Suspect]
     Active Substance: RIVASTIGMINE
     Indication: MEMORY IMPAIRMENT
     Dosage: 4.6 MG, QD (5CM2)
     Route: 062
     Dates: start: 201405
  2. EXELON PATCH [Suspect]
     Active Substance: RIVASTIGMINE
     Indication: OFF LABEL USE
     Dosage: 9.5 MG, UNK (10CM2)
     Route: 062

REACTIONS (8)
  - Pyrexia [Recovered/Resolved]
  - Wrong technique in drug usage process [Unknown]
  - Infection [Unknown]
  - Vomiting [Recovering/Resolving]
  - Hypertension [Recovered/Resolved]
  - Nausea [Recovering/Resolving]
  - Cough [Unknown]
  - Infarction [Recovered/Resolved]
